FAERS Safety Report 12776674 (Version 1)
Quarter: 2016Q3

REPORT INFORMATION
  Report Type: Spontaneous
  Country: US (occurrence: US)
  Receive Date: 20160923
  Receipt Date: 20160923
  Transmission Date: 20161109
  Serious: No
  Sender: FDA-Public Use
  Company Number: US-GLAXOSMITHKLINE-US2016139122

PATIENT
  Age: 50 Year
  Sex: Female

DRUGS (1)
  1. ABREVA [Suspect]
     Active Substance: DOCOSANOL
     Indication: ORAL HERPES
     Dosage: UNK
     Dates: start: 20160919, end: 20160921

REACTIONS (6)
  - Application site burn [Recovered/Resolved with Sequelae]
  - Oral discomfort [Recovered/Resolved with Sequelae]
  - Condition aggravated [Recovered/Resolved with Sequelae]
  - Feeling cold [Recovered/Resolved with Sequelae]
  - Application site pain [Recovered/Resolved with Sequelae]
  - Oral herpes [Recovered/Resolved with Sequelae]

NARRATIVE: CASE EVENT DATE: 20160919
